FAERS Safety Report 7879990-0 (Version None)
Quarter: 2011Q4

REPORT INFORMATION
  Report Type: 
  Country: None (occurrence: None)
  Receive Date: 20111101
  Receipt Date: 20111025
  Transmission Date: 20120403
  Serious: Yes (Other)
  Sender: FDA-Public Use
  Company Number: NL-ABBOTT-11P-114-0868114-00

PATIENT
  Sex: Female
  Weight: 105 kg

DRUGS (8)
  1. HUMIRA [Suspect]
     Indication: CROHN'S DISEASE
     Dosage: 4
     Route: 058
     Dates: start: 20110909, end: 20110909
  2. PREDNISOLONE [Concomitant]
     Indication: CROHN'S DISEASE
     Route: 048
     Dates: start: 20110916, end: 20111021
  3. LEVOTHYROXINE SODIUM [Concomitant]
     Indication: THYROID DISORDER
     Route: 048
     Dates: start: 19810101
  4. REMICADE [Concomitant]
     Indication: CROHN'S DISEASE
     Route: 042
     Dates: start: 20100901, end: 20110718
  5. CARBASALATE CALCIUM [Concomitant]
     Indication: TRANSIENT ISCHAEMIC ATTACK
     Dates: start: 20040101
  6. DIPYRIDAMOL [Concomitant]
     Indication: TRANSIENT ISCHAEMIC ATTACK
     Dosage: MGA
     Route: 048
     Dates: start: 20040101
  7. HYDROXOCOBALAMIN [Concomitant]
     Indication: CROHN'S DISEASE
     Dosage: 500MCG/ML,AMPULES 2ML
     Route: 030
     Dates: start: 20090101
  8. COLECALCIFEROL [Concomitant]
     Indication: CROHN'S DISEASE
     Dosage: DRANK 50,000IE/ML
     Route: 048

REACTIONS (2)
  - INFLAMMATION [None]
  - OSTEITIS [None]
